FAERS Safety Report 24997119 (Version 3)
Quarter: 2025Q2

REPORT INFORMATION
  Report Type: Report from Study
  Country: US (occurrence: US)
  Receive Date: 20250221
  Receipt Date: 20250508
  Transmission Date: 20250716
  Serious: Yes (Hospitalization)
  Sender: TAIHO ONCOLOGY INC
  Company Number: US-TAIHOP-2025-001904

PATIENT
  Age: 73 Year
  Sex: Male
  Weight: 77.11 kg

DRUGS (7)
  1. INQOVI [Suspect]
     Active Substance: CEDAZURIDINE\DECITABINE
     Indication: Myelodysplastic syndrome
     Dosage: ONE TABLET (35 MG DECITABINE AND 100 MG CEDAZURIDINE) ON DAYS 1-5 OF EACH 28 DAY CYCLE; CYCLE 1 STAR
     Route: 048
     Dates: start: 202502
  2. INQOVI [Suspect]
     Active Substance: CEDAZURIDINE\DECITABINE
     Dosage: ONE TABLET (35 MG DECITABINE AND 100 MG CEDAZURIDINE) ON DAYS 1-3 OF EACH 28 DAY CYCLE; CURRENT CYCL
     Route: 048
  3. AMLODIPINE BESYLATE [Concomitant]
     Active Substance: AMLODIPINE BESYLATE
     Indication: Product used for unknown indication
     Route: 048
  4. ATORVASTATIN CALCIUM [Concomitant]
     Active Substance: ATORVASTATIN CALCIUM
     Indication: Product used for unknown indication
     Route: 048
  5. LOSARTAN POTASSIUM [Concomitant]
     Active Substance: LOSARTAN POTASSIUM
     Indication: Product used for unknown indication
     Route: 048
  6. MENS 50+ MULTIVITAMIN [Concomitant]
     Indication: Product used for unknown indication
     Route: 048
  7. METOPROLOL SUCCINATE [Concomitant]
     Active Substance: METOPROLOL SUCCINATE
     Indication: Product used for unknown indication
     Route: 048

REACTIONS (5)
  - Platelet count decreased [Unknown]
  - Subdural haematoma [Unknown]
  - Pyrexia [Not Recovered/Not Resolved]
  - Fatigue [Unknown]
  - Inappropriate schedule of product administration [Unknown]

NARRATIVE: CASE EVENT DATE: 20250227
